FAERS Safety Report 6851957-0 (Version None)
Quarter: 2010Q3

REPORT INFORMATION
  Report Type: 
  Country: None (occurrence: None)
  Receive Date: 20100717
  Receipt Date: 20071105
  Transmission Date: 20110219
  Serious: No
  Sender: FDA-Public Use
  Company Number: US-PFIZER INC-2007094560

PATIENT
  Sex: Female
  Weight: 63.6 kg

DRUGS (10)
  1. CHANTIX [Suspect]
     Indication: SMOKING CESSATION THERAPY
     Dates: start: 20070901
  2. ZOCOR [Concomitant]
  3. MONTELUKAST SODIUM [Concomitant]
  4. LISINOPRIL [Concomitant]
  5. ESTROPIPATE [Concomitant]
  6. METFORMIN HCL [Concomitant]
  7. LANTUS [Concomitant]
  8. HYDROCODONE [Concomitant]
  9. VITAMINS [Concomitant]
  10. FOLIC ACID [Concomitant]

REACTIONS (5)
  - CONSTIPATION [None]
  - DYSGEUSIA [None]
  - INCREASED APPETITE [None]
  - INSOMNIA [None]
  - NIGHTMARE [None]
